FAERS Safety Report 5905833-8 (Version None)
Quarter: 2008Q4

REPORT INFORMATION
  Report Type: 
  Country: None (occurrence: None)
  Receive Date: 20081002
  Receipt Date: 20080924
  Transmission Date: 20090506
  Serious: Yes (Other)
  Sender: FDA-Public Use
  Company Number: TH-ASTRAZENECA-2008AP07243

PATIENT
  Sex: Male

DRUGS (2)
  1. MARCAINE [Suspect]
     Indication: SPINAL ANAESTHESIA
     Route: 037
     Dates: start: 20080818, end: 20080818
  2. MARCAINE [Suspect]
     Indication: ORTHOPEDIC PROCEDURE
     Route: 037
     Dates: start: 20080818, end: 20080818

REACTIONS (1)
  - DRUG INEFFECTIVE [None]
